FAERS Safety Report 20326083 (Version 1)
Quarter: 2022Q1

REPORT INFORMATION
  Report Type: Spontaneous
  Country: US (occurrence: US)
  Receive Date: 20220112
  Receipt Date: 20220112
  Transmission Date: 20220423
  Serious: No
  Sender: FDA-Public Use
  Company Number: US-TEVA-2022-US-1997166

PATIENT
  Age: 57 Year
  Sex: Female

DRUGS (1)
  1. CLONAZEPAM [Suspect]
     Active Substance: CLONAZEPAM
     Indication: Panic disorder
     Route: 065

REACTIONS (6)
  - Feeling abnormal [Unknown]
  - Agnosia [Unknown]
  - Middle insomnia [Unknown]
  - Inappropriate schedule of product administration [Unknown]
  - Product residue present [Unknown]
  - Anger [Unknown]
